FAERS Safety Report 4693841-7 (Version None)
Quarter: 2005Q2

REPORT INFORMATION
  Report Type: 
  Country: None (occurrence: None)
  Receive Date: 20050616
  Receipt Date: 20050603
  Transmission Date: 20051028
  Serious: Yes (Other)
  Sender: FDA-Public Use
  Company Number: 2005085015

PATIENT
  Age: 72 Year
  Sex: Female

DRUGS (5)
  1. CABERGOLINE [Suspect]
     Indication: PARKINSON'S DISEASE
     Dosage: 2 MG (1 MG, BID), ORAL
     Route: 048
     Dates: start: 20030701
  2. LEBOCAR 100/25 (CARBIDOPA , LEVODOPA) [Suspect]
     Indication: PARKINSON'S DISEASE
     Dosage: 100 MG (100 MG, DAILY), ORAL
     Route: 048
     Dates: start: 20030701
  3. COMTESS (ENTACAPONE) [Suspect]
     Indication: PARKINSON'S DISEASE
     Dosage: 1200 MG (200 MG, SIX TIME), ORAL
     Route: 048
     Dates: start: 20030701
  4. MADOPAR (BENSERAZIDE HYDROCHLORIDE, LEVODOPA) [Suspect]
     Indication: PARKINSON'S DISEASE
     Dosage: 500 MG/250 MG (FIVE TIME), ORAL
     Route: 048
     Dates: start: 20030701
  5. MADOPAR (BENSERAZIDE HYDROCHLORIDE, LEVODOPA) [Suspect]
     Indication: PARKINSON'S DISEASE
     Dosage: 100 MG /25 MG (DAILY), ORAL
     Route: 048
     Dates: start: 20030701

REACTIONS (2)
  - DENTAL NECROSIS [None]
  - TOOTH LOSS [None]
